FAERS Safety Report 22194804 (Version 1)
Quarter: 2023Q2

REPORT INFORMATION
  Report Type: Other
  Country: US (occurrence: US)
  Receive Date: 20230411
  Receipt Date: 20230411
  Transmission Date: 20230721
  Serious: Yes (Hospitalization)
  Sender: FDA-Public Use
  Company Number: US-GBT-021546

PATIENT
  Sex: Male

DRUGS (1)
  1. OXBRYTA [Suspect]
     Active Substance: VOXELOTOR
     Indication: Sickle cell disease
     Dosage: 500MG 3 TIMES A DAY
     Route: 065

REACTIONS (3)
  - Sickle cell anaemia with crisis [Recovered/Resolved]
  - Inappropriate schedule of product administration [Unknown]
  - Therapy cessation [Unknown]
